FAERS Safety Report 5512209-4 (Version None)
Quarter: 2007Q4

REPORT INFORMATION
  Report Type: 
  Country: None (occurrence: None)
  Receive Date: 20071112
  Receipt Date: 20071106
  Transmission Date: 20080405
  Serious: Yes (Death)
  Sender: FDA-Public Use
  Company Number: PHBS2007ES17922

PATIENT
  Sex: Male

DRUGS (1)
  1. THIORIDAZINE [Suspect]
     Indication: SCHIZOPHRENIA, DISORGANISED TYPE
     Route: 065

REACTIONS (3)
  - DRUG LEVEL INCREASED [None]
  - DRUG TOXICITY [None]
  - SUDDEN DEATH [None]
